FAERS Safety Report 13408239 (Version 1)
Quarter: 2017Q2

REPORT INFORMATION
  Report Type: Spontaneous
  Country: US (occurrence: US)
  Receive Date: 20170405
  Receipt Date: 20170405
  Transmission Date: 20170830
  Serious: No
  Sender: FDA-Public Use
  Company Number: None

PATIENT
  Age: 57 Year
  Sex: Female

DRUGS (1)
  1. ADCIRCA [Suspect]
     Active Substance: TADALAFIL
     Indication: PULMONARY ARTERIAL HYPERTENSION
     Route: 048
     Dates: start: 20160607, end: 20170405

REACTIONS (5)
  - Eye pain [None]
  - Erythema of eyelid [None]
  - Conjunctivitis [None]
  - Lacrimation increased [None]
  - Eyelid oedema [None]

NARRATIVE: CASE EVENT DATE: 20170404
